FAERS Safety Report 10619680 (Version 1)
Quarter: 2014Q4

REPORT INFORMATION
  Report Type: Report from Study
  Country: BR (occurrence: BR)
  Receive Date: 20141202
  Receipt Date: 20141202
  Transmission Date: 20150529
  Serious: Yes (Death, Hospitalization)
  Sender: FDA-Public Use
  Company Number: BR-BRISTOL-MYERS SQUIBB COMPANY-21649553

PATIENT
  Age: 67 Year
  Sex: Male
  Weight: 92 kg

DRUGS (8)
  1. FLUOROURACIL. [Concomitant]
     Active Substance: FLUOROURACIL
  2. ERBITUX [Suspect]
     Active Substance: CETUXIMAB
     Indication: COLORECTAL CANCER METASTATIC
     Dosage: 250MG ALTERNATED
     Route: 042
     Dates: start: 20140512
  3. OXALIPLATIN. [Concomitant]
     Active Substance: OXALIPLATIN
  4. OMEPRAZOLE. [Concomitant]
     Active Substance: OMEPRAZOLE
  5. IRINOTECAN [Concomitant]
     Active Substance: IRINOTECAN
  6. FOLINIC ACID [Concomitant]
     Active Substance: LEUCOVORIN
  7. ALDACTONE [Concomitant]
     Active Substance: SPIRONOLACTONE
  8. ACETYLSALICYLIC ACID [Concomitant]
     Active Substance: ASPIRIN

REACTIONS (7)
  - Hypotension [Fatal]
  - Wound [Fatal]
  - Nausea [Fatal]
  - Pyrexia [Fatal]
  - Fluid retention [Fatal]
  - Diarrhoea [Fatal]
  - Peripheral swelling [Fatal]

NARRATIVE: CASE EVENT DATE: 201406
